FAERS Safety Report 18300308 (Version 1)
Quarter: 2020Q3

REPORT INFORMATION
  Report Type: Spontaneous
  Country: US (occurrence: US)
  Receive Date: 20200922
  Receipt Date: 20200922
  Transmission Date: 20201103
  Serious: Yes (Other)
  Sender: FDA-Public Use
  Company Number: None

PATIENT
  Age: 49 Year
  Sex: Female

DRUGS (1)
  1. KISQALI [Suspect]
     Active Substance: RIBOCICLIB
     Indication: BREAST CANCER FEMALE
     Dosage: ?          OTHER FREQUENCY:D 1?21;OTHER ROUTE:PO ? FOR 28 D CYCLE?
     Route: 048
     Dates: start: 20200124

REACTIONS (2)
  - Therapy interrupted [None]
  - Mastectomy [None]

NARRATIVE: CASE EVENT DATE: 20200918
